FAERS Safety Report 7283388-6 (Version None)
Quarter: 2011Q1

REPORT INFORMATION
  Report Type: 
  Country: None (occurrence: None)
  Receive Date: 20110209
  Receipt Date: 20100802
  Transmission Date: 20110831
  Serious: No
  Sender: FDA-Public Use
  Company Number: A0873444A

PATIENT
  Age: 29 Year
  Sex: Female

DRUGS (3)
  1. PAROXETINE HCL [Suspect]
     Indication: ANXIETY DISORDER
     Dosage: 25MG PER DAY
     Route: 048
     Dates: start: 20090701, end: 20091001
  2. BIRTH CONTROL [Concomitant]
  3. XANAX [Concomitant]

REACTIONS (5)
  - HEADACHE [None]
  - DIZZINESS [None]
  - FATIGUE [None]
  - VERTIGO [None]
  - ANXIETY [None]
